FAERS Safety Report 7903013-8 (Version None)
Quarter: 2011Q4

REPORT INFORMATION
  Report Type: 
  Country: None (occurrence: None)
  Receive Date: 20111109
  Receipt Date: 20111027
  Transmission Date: 20120403
  Serious: Yes (Other)
  Sender: FDA-Public Use
  Company Number: JP-ELI_LILLY_AND_COMPANY-JP201108009095

PATIENT
  Age: 75 Year
  Sex: Female

DRUGS (1)
  1. FORTEO [Suspect]
     Dosage: UNK
     Route: 058
     Dates: start: 20110823

REACTIONS (5)
  - INJECTION SITE HAEMATOMA [None]
  - BACK PAIN [None]
  - HEADACHE [None]
  - CATARACT OPERATION [None]
  - PAIN [None]
